FAERS Safety Report 20339693 (Version 1)
Quarter: 2022Q1

REPORT INFORMATION
  Report Type: Spontaneous
  Country: US (occurrence: US)
  Receive Date: 20220117
  Receipt Date: 20220117
  Transmission Date: 20220423
  Serious: No
  Sender: FDA-Public Use
  Company Number: US-BION-009614

PATIENT

DRUGS (1)
  1. DIPHENHYDRAMINE\IBUPROFEN [Suspect]
     Active Substance: DIPHENHYDRAMINE\IBUPROFEN
     Indication: Product used for unknown indication

REACTIONS (3)
  - Product physical issue [Unknown]
  - Wrong technique in product usage process [Not Recovered/Not Resolved]
  - Poor quality product administered [Not Recovered/Not Resolved]
